FAERS Safety Report 8471278-2 (Version None)
Quarter: 2012Q2

REPORT INFORMATION
  Report Type: 
  Country: None (occurrence: None)
  Receive Date: 20120627
  Receipt Date: 20120619
  Transmission Date: 20120825
  Serious: Yes (Hospitalization)
  Sender: FDA-Public Use
  Company Number: US-BAYER-2012-033463

PATIENT
  Age: 15 Year
  Sex: Female
  Weight: 52.154 kg

DRUGS (7)
  1. YASMIN [Suspect]
     Indication: DYSMENORRHOEA
  2. IBUPROFEN [Concomitant]
     Dosage: UNK
     Route: 048
     Dates: start: 20021108
  3. ACETAMINOPHEN [Concomitant]
     Dosage: UNK
     Route: 048
     Dates: start: 20021108
  4. YASMIN [Suspect]
     Indication: PREMENSTRUAL SYNDROME
  5. KETOROLAC TROMETHAMINE [Concomitant]
     Dosage: 10 MG, UNK
     Route: 048
     Dates: start: 20021108
  6. YASMIN [Suspect]
     Indication: ACNE
     Dosage: UNK
     Dates: start: 20021101
  7. ASCORBIC ACID [Concomitant]

REACTIONS (11)
  - INJURY [None]
  - FEELING HOT [None]
  - CHEST PAIN [None]
  - SCAR [None]
  - EMOTIONAL DISTRESS [None]
  - OEDEMA PERIPHERAL [None]
  - VOMITING [None]
  - MOBILITY DECREASED [None]
  - DEEP VEIN THROMBOSIS [None]
  - DYSPNOEA [None]
  - PULMONARY EMBOLISM [None]
